FAERS Safety Report 9797946 (Version 1)
Quarter: 2014Q1

REPORT INFORMATION
  Report Type: Report from Study
  Country: BR (occurrence: BR)
  Receive Date: 20140106
  Receipt Date: 20140106
  Transmission Date: 20141002
  Serious: Yes (Other)
  Sender: FDA-Public Use
  Company Number: PHHY2014BR000592

PATIENT
  Age: 70 Year
  Sex: Female
  Weight: 62 kg

DRUGS (3)
  1. ACLASTA [Suspect]
     Indication: OSTEOPOROSIS
     Dosage: 5 MG, UNK
     Dates: start: 2007
  2. DEPURA [Concomitant]
     Dosage: UNK UKN, UNK
     Dates: start: 2013
  3. ARTRODAR [Concomitant]
     Dosage: UNK UKN, UNK
     Dates: start: 201312

REACTIONS (2)
  - Foot fracture [Recovered/Resolved with Sequelae]
  - Osteopenia [Recovering/Resolving]
